FAERS Safety Report 10142447 (Version 3)
Quarter: 2014Q2

REPORT INFORMATION
  Report Type: Spontaneous
  Country: US (occurrence: US)
  Receive Date: 20140430
  Receipt Date: 20140514
  Transmission Date: 20141212
  Serious: Yes (Other)
  Sender: FDA-Public Use
  Company Number: US-BEH-2013037348

PATIENT
  Age: 61 Year
  Sex: Male

DRUGS (1)
  1. PRIVIGEN [Suspect]
     Indication: BLOOD IMMUNOGLOBULIN G DECREASED
     Dosage: OCT-2009 UNTIL OCT-2012
     Route: 042
     Dates: end: 20131111

REACTIONS (13)
  - Mycobacterium avium complex infection [Not Recovered/Not Resolved]
  - Bronchiectasis [Not Recovered/Not Resolved]
  - Lung disorder [Unknown]
  - Respiratory disorder [Unknown]
  - Hyperhidrosis [Recovered/Resolved]
  - Joint swelling [Recovered/Resolved]
  - Lower respiratory tract infection [Not Recovered/Not Resolved]
  - Influenza like illness [Recovered/Resolved]
  - Pain [Recovered/Resolved]
  - Chills [Recovered/Resolved]
  - Headache [Unknown]
  - Influenza like illness [Unknown]
  - Pyrexia [Unknown]
